FAERS Safety Report 6134115-7 (Version None)
Quarter: 2009Q1

REPORT INFORMATION
  Report Type: 
  Country: None (occurrence: None)
  Receive Date: 20090326
  Receipt Date: 20090320
  Transmission Date: 20090719
  Serious: Yes (Hospitalization)
  Sender: FDA-Public Use
  Company Number: AU-ASTRAZENECA-2009AP02064

PATIENT
  Sex: Female

DRUGS (1)
  1. ARIMIDEX [Suspect]
     Indication: BREAST CANCER
     Route: 048

REACTIONS (9)
  - HALLUCINATION [None]
  - HEART RATE IRREGULAR [None]
  - HYPERHIDROSIS [None]
  - OEDEMA PERIPHERAL [None]
  - PNEUMONIA VIRAL [None]
  - RENAL FAILURE [None]
  - SLOW VIRUS INFECTION [None]
  - SPEECH DISORDER [None]
  - URINARY BLADDER HAEMORRHAGE [None]
